FAERS Safety Report 9938925 (Version 1)
Quarter: 2014Q1

REPORT INFORMATION
  Report Type: Report from Study
  Country: US (occurrence: US)
  Receive Date: 20140303
  Receipt Date: 20140303
  Transmission Date: 20141002
  Serious: No
  Sender: FDA-Public Use
  Company Number: US-ABBVIE-13P-163-1035807-00

PATIENT
  Age: 53 Year
  Sex: Female

DRUGS (9)
  1. HUMIRA [Suspect]
     Indication: PSORIASIS
     Dates: start: 20130109
  2. CLOBETASOL OINTMENT [Concomitant]
     Indication: PRODUCT USED FOR UNKNOWN INDICATION
     Dosage: APPLY TWICE DAILY TO HANDS
  3. UNKNOWN BIRTH CONTROL [Concomitant]
     Indication: PRODUCT USED FOR UNKNOWN INDICATION
     Dosage: DAILY
  4. EFFEXOR [Concomitant]
     Indication: NERVOUSNESS
  5. PINDOLOL [Concomitant]
     Indication: HYPERTENSION
  6. AMITRIPTYLINE [Concomitant]
     Indication: NERVOUSNESS
  7. AMITRIPTYLINE [Concomitant]
     Indication: FIBROMYALGIA
  8. SIMVASTATIN [Concomitant]
     Indication: BLOOD CHOLESTEROL INCREASED
  9. ASPIRIN [Concomitant]
     Indication: PRODUCT USED FOR UNKNOWN INDICATION

REACTIONS (1)
  - Injection site bruising [Not Recovered/Not Resolved]
